FAERS Safety Report 8420179-4 (Version None)
Quarter: 2012Q2

REPORT INFORMATION
  Report Type: 
  Country: None (occurrence: None)
  Receive Date: 20120607
  Receipt Date: 20120525
  Transmission Date: 20120825
  Serious: Yes (Hospitalization)
  Sender: FDA-Public Use
  Company Number: GB-MYLANLABS-2012S1011132

PATIENT
  Age: 26 Year
  Sex: Female
  Weight: 59 kg

DRUGS (4)
  1. GOLIMUMAB [Concomitant]
     Indication: RHEUMATOID ARTHRITIS
     Dosage: TWO DOSES OF 50MG
     Route: 065
  2. HYDROXYCHLOROQUINE SULFATE [Interacting]
     Indication: RHEUMATOID ARTHRITIS
     Dosage: 400MG DAILY
     Route: 065
  3. FOLIC ACID [Concomitant]
     Indication: RHEUMATOID ARTHRITIS
     Dosage: 5MG WEEKLY
     Route: 065
  4. METHOTREXATE [Suspect]
     Indication: RHEUMATOID ARTHRITIS
     Dosage: 20MG WEEKLY
     Route: 065

REACTIONS (3)
  - DRUG INTERACTION [None]
  - PORTAL HYPERTENSION [None]
  - HEPATIC CIRRHOSIS [None]
